FAERS Safety Report 9551843 (Version 1)
Quarter: 2013Q3

REPORT INFORMATION
  Report Type: Spontaneous
  Country: US (occurrence: None)
  Receive Date: 20130724
  Receipt Date: 20130724
  Transmission Date: 20140515
  Serious: Yes (Hospitalization)
  Sender: FDA-Public Use
  Company Number: PHEH2012US017208

PATIENT
  Age: 73 Year
  Sex: Female

DRUGS (9)
  1. GLEEVEC [Suspect]
     Indication: PARAPROTEINAEMIA
     Route: 048
     Dates: start: 20120629
  2. LIPITOR (ATORVASTATIN CALCIUM) [Concomitant]
  3. PANTOPRAZOLE (PANTOPRAZOLE) [Concomitant]
  4. LEVOTHYROXINE (LEVOTHYROXINE) [Concomitant]
  5. TORSEMIDE [Concomitant]
  6. VYTORIN (EZETIMIBE, SIMVASTATIN) [Concomitant]
  7. TEKTURNA (ALISKIREN FUMARATE) [Concomitant]
  8. POTASSIUM (POTASSIUM) [Concomitant]
  9. SODIUM ACETATE (SODIUM ACETATE) [Concomitant]

REACTIONS (11)
  - Gastrointestinal haemorrhage [None]
  - Sleep disorder [None]
  - Frequent bowel movements [None]
  - Pain in extremity [None]
  - Abdominal distension [None]
  - Constipation [None]
  - Swelling face [None]
  - Eye swelling [None]
  - Nausea [None]
  - Joint swelling [None]
  - Faeces discoloured [None]
